FAERS Safety Report 7938896-9 (Version None)
Quarter: 2011Q4

REPORT INFORMATION
  Report Type: 
  Country: None (occurrence: None)
  Receive Date: 20111124
  Receipt Date: 20111116
  Transmission Date: 20120403
  Serious: Yes (Other)
  Sender: FDA-Public Use
  Company Number: CHPA2011FR016381

PATIENT
  Sex: Female

DRUGS (2)
  1. NICOTINE [Suspect]
     Dosage: 7 MG, QD
     Route: 062
     Dates: start: 20111003, end: 20111003
  2. NICOTINE [Suspect]
     Indication: SMOKING CESSATION THERAPY
     Dosage: 21 MG, QD
     Route: 062
     Dates: start: 20111003

REACTIONS (6)
  - DIZZINESS [None]
  - NAUSEA [None]
  - HEADACHE [None]
  - HYPERHIDROSIS [None]
  - TREATMENT NONCOMPLIANCE [None]
  - OVERDOSE [None]
